FAERS Safety Report 4318353-1 (Version None)
Quarter: 2004Q1

REPORT INFORMATION
  Report Type: 
  Country: None (occurrence: None)
  Receive Date: 20040315
  Receipt Date: 20031125
  Transmission Date: 20041129
  Serious: No
  Sender: FDA-Public Use
  Company Number: 2003188121US

PATIENT
  Age: 70 Year
  Sex: Male
  Weight: 70.3 kg

DRUGS (1)
  1. BEXTRA [Suspect]
     Indication: ARTHRITIS
     Dosage: 10 MG, QD,
     Dates: start: 20020101, end: 20020101

REACTIONS (1)
  - GINGIVAL PAIN [None]
